FAERS Safety Report 9232241 (Version 1)
Quarter: 2013Q2

REPORT INFORMATION
  Report Type: Spontaneous
  Country: DE (occurrence: DE)
  Receive Date: 20130415
  Receipt Date: 20130415
  Transmission Date: 20140414
  Serious: Yes (Disabling)
  Sender: FDA-Public Use
  Company Number: DE-AMGEN-DEUSP2013025919

PATIENT
  Sex: Female

DRUGS (6)
  1. PEGFILGRASTIM [Suspect]
     Indication: B-CELL LYMPHOMA
     Dosage: 6 MG, ONE TIME DOSE
     Route: 058
     Dates: start: 20120804, end: 20120804
  2. RITUXIMAB [Suspect]
     Indication: B-CELL LYMPHOMA
     Dosage: 285 MG, 1 IN 1 D
     Route: 042
     Dates: start: 20120727
  3. CYCLOPHOSPHAMIDE [Suspect]
     Indication: B-CELL LYMPHOMA
     Dosage: 1170 MG, 1 IN 1 D
     Route: 042
     Dates: start: 20120801
  4. VINCRISTINE [Suspect]
     Indication: B-CELL LYMPHOMA
     Dosage: 3.12 MG, 1 IN 1 D
     Route: 042
     Dates: start: 20120801
  5. PREDNISOLONE [Suspect]
     Indication: B-CELL LYMPHOMA
     Dosage: 100 MG, 5 DAYS
     Route: 048
     Dates: start: 20120801
  6. DOXORUBICIN [Suspect]
     Indication: B-CELL LYMPHOMA
     Dosage: 78 MG, 1 IN 1 D
     Route: 042
     Dates: start: 20120801

REACTIONS (1)
  - Agranulocytosis [Not Recovered/Not Resolved]
